FAERS Safety Report 17509221 (Version 6)
Quarter: 2020Q3

REPORT INFORMATION
  Report Type: Spontaneous
  Country: JP (occurrence: JP)
  Receive Date: 20200306
  Receipt Date: 20200902
  Transmission Date: 20201102
  Serious: Yes (Hospitalization)
  Sender: FDA-Public Use
  Company Number: JP-VIFOR (INTERNATIONAL) INC.-VIT-2020-03657

PATIENT
  Age: 68 Year
  Sex: Male
  Weight: 49 kg

DRUGS (16)
  1. FEBURIC [Concomitant]
     Active Substance: FEBUXOSTAT
     Route: 048
  2. CHLORAMPHENICOL [Concomitant]
     Active Substance: CHLORAMPHENICOL
  3. NESP [Concomitant]
     Active Substance: DARBEPOETIN ALFA
     Indication: NEPHROGENIC ANAEMIA
  4. NESP [Concomitant]
     Active Substance: DARBEPOETIN ALFA
     Route: 058
     Dates: start: 20200212, end: 20200212
  5. AZATHIOPRINE. [Concomitant]
     Active Substance: AZATHIOPRINE
  6. ISONIAZID. [Concomitant]
     Active Substance: ISONIAZID
  7. INTERFERON [Concomitant]
     Active Substance: INTERFERON
  8. IRBESARTAN. [Concomitant]
     Active Substance: IRBESARTAN
     Dosage: AFTER BREAKFAST
     Route: 048
  9. MIRCERA [Suspect]
     Active Substance: METHOXY POLYETHYLENE GLYCOL-EPOETIN BETA
     Indication: NEPHROGENIC ANAEMIA
     Route: 058
     Dates: start: 20190906, end: 20191226
  10. PHENYTOIN. [Concomitant]
     Active Substance: PHENYTOIN
  11. CICLOSPORIN [Concomitant]
     Active Substance: CYCLOSPORINE
     Dates: start: 20200219
  12. MIRCERA [Suspect]
     Active Substance: METHOXY POLYETHYLENE GLYCOL-EPOETIN BETA
     Route: 058
     Dates: start: 20190617, end: 20191206
  13. PROTECADIN OD [Concomitant]
     Active Substance: LAFUTIDINE
     Route: 048
     Dates: start: 20200131
  14. PROCAINAMIDE HYDROCHLORIDE. [Concomitant]
     Active Substance: PROCAINAMIDE HYDROCHLORIDE
  15. MIRCERA [Suspect]
     Active Substance: METHOXY POLYETHYLENE GLYCOL-EPOETIN BETA
     Route: 058
     Dates: start: 20200110, end: 20200110
  16. RECALBON [Concomitant]
     Route: 048

REACTIONS (4)
  - Dizziness [Unknown]
  - Influenza [Recovered/Resolved]
  - Aplasia pure red cell [Not Recovered/Not Resolved]
  - Steroid withdrawal syndrome [Unknown]

NARRATIVE: CASE EVENT DATE: 20200131
